FAERS Safety Report 22100779 (Version 3)
Quarter: 2023Q2

REPORT INFORMATION
  Report Type: Report from Study
  Country: KR (occurrence: KR)
  Receive Date: 20230316
  Receipt Date: 20230403
  Transmission Date: 20230722
  Serious: Yes (Hospitalization)
  Sender: FDA-Public Use
  Company Number: KR-ABBVIE-4342133

PATIENT
  Age: 41 Year
  Sex: Male
  Weight: 72 kg

DRUGS (7)
  1. RISANKIZUMAB [Suspect]
     Active Substance: RISANKIZUMAB
     Indication: Psoriasis
     Route: 058
     Dates: start: 20220401, end: 20220401
  2. RISANKIZUMAB [Suspect]
     Active Substance: RISANKIZUMAB
     Route: 058
     Dates: start: 20221014, end: 20221014
  3. RISANKIZUMAB [Suspect]
     Active Substance: RISANKIZUMAB
     Route: 058
     Dates: start: 20230106, end: 20230106
  4. RISANKIZUMAB [Suspect]
     Active Substance: RISANKIZUMAB
     Route: 058
     Dates: start: 20220429, end: 20220429
  5. RISANKIZUMAB [Suspect]
     Active Substance: RISANKIZUMAB
     Route: 058
     Dates: start: 20220722, end: 20220722
  6. INAH [Concomitant]
     Indication: Latent tuberculosis
     Dosage: TIME INTERVAL: 0.33333333 DAYS
     Route: 048
     Dates: start: 20220307, end: 20221014
  7. PYRIDOXINE SINIL [Concomitant]
     Indication: Latent tuberculosis
     Route: 048
     Dates: start: 20220307, end: 20221014

REACTIONS (1)
  - Anal fistula [Recovered/Resolved]

NARRATIVE: CASE EVENT DATE: 20230315
